FAERS Safety Report 5753990-9 (Version None)
Quarter: 2008Q2

REPORT INFORMATION
  Report Type: 
  Country: None (occurrence: None)
  Receive Date: 20080530
  Receipt Date: 20080526
  Transmission Date: 20081010
  Serious: Yes (Death)
  Sender: FDA-Public Use
  Company Number: AT-WYE-G01590808

PATIENT
  Age: 52 Year
  Sex: Male
  Weight: 90 kg

DRUGS (10)
  1. RAPAMUNE [Suspect]
     Indication: IMMUNOSUPPRESSION
     Dosage: 5 MG PER DAY
     Dates: start: 20030111
  2. RAPAMUNE [Suspect]
     Indication: HYPERTENSION
     Dosage: 4 MG PER DAY
     Dates: start: 20030101
  3. RAPAMUNE [Suspect]
     Dosage: 3 MG PER DAY
     Dates: start: 20030101
  4. RAPAMUNE [Suspect]
     Dosage: 2 MG PER DAY
     Dates: start: 20040101
  5. RAPAMUNE [Suspect]
     Dosage: 3 MG PER DAY
     Dates: start: 20050101
  6. RAPAMUNE [Suspect]
     Dosage: 2 MG PER DAY
     Dates: start: 20050101
  7. RAPAMUNE [Suspect]
     Dosage: 3 MG PER DAY
     Dates: start: 20060101
  8. RAPAMUNE [Suspect]
     Dosage: 1.5 MG PER DAY
     Dates: start: 20060101
  9. RAPAMUNE [Suspect]
     Dosage: 2 MG PER DAY
     Dates: start: 20070101
  10. RAPAMUNE [Suspect]
     Dosage: 1.2 MG PER DAY
     Dates: start: 20070101

REACTIONS (1)
  - CARDIAC ARREST [None]
